FAERS Safety Report 10024207 (Version 1)
Quarter: 2014Q1

REPORT INFORMATION
  Report Type: Spontaneous
  Country: US (occurrence: None)
  Receive Date: 20140304
  Receipt Date: 20140304
  Transmission Date: 20141002
  Serious: Yes (Other)
  Sender: FDA-Public Use
  Company Number: RB-48130-2012

PATIENT
  Age: 30 Year
  Sex: Female

DRUGS (4)
  1. SUBOXONE [Suspect]
     Indication: DRUG DEPENDENCE
     Dosage: 8 MG, BID, SUBOXONE FILM SUBLINGUAL
     Route: 060
     Dates: start: 20120829, end: 20120910
  2. SUBUTEX 8 MG [Suspect]
     Indication: DRUG DEPENDENCE
     Route: 060
     Dates: start: 20120911, end: 20121024
  3. NICOTINE [Concomitant]
  4. VITAMINS [Concomitant]

REACTIONS (2)
  - Selective abortion [None]
  - Exposure during pregnancy [None]
